FAERS Safety Report 11605239 (Version 2)
Quarter: 2015Q4

REPORT INFORMATION
  Report Type: Spontaneous
  Country: US (occurrence: None)
  Receive Date: 20151006
  Receipt Date: 20151006
  Transmission Date: 20160304
  Serious: No
  Sender: FDA-Public Use
  Company Number: None

PATIENT
  Age: 75 Year
  Sex: Male
  Weight: 90.72 kg

DRUGS (5)
  1. METOPROLOL [Suspect]
     Active Substance: METOPROLOL
     Indication: CARDIAC OPERATION
     Dosage: REDUCED OVER 5 MOS TO 0
     Route: 048
     Dates: start: 20150413, end: 20150921
  2. DIOVAN [Concomitant]
     Active Substance: VALSARTAN
  3. COREG [Concomitant]
     Active Substance: CARVEDILOL
  4. ONE DAILY ^COMPREHENSIVE^ VITAMIN PILL [Concomitant]
  5. ATORVASTATIN [Concomitant]
     Active Substance: ATORVASTATIN

REACTIONS (1)
  - Alopecia [None]

NARRATIVE: CASE EVENT DATE: 20150601
